FAERS Safety Report 9476538 (Version 1)
Quarter: 2013Q3

REPORT INFORMATION
  Report Type: Spontaneous
  Country: US (occurrence: None)
  Receive Date: 20130823
  Receipt Date: 20130823
  Transmission Date: 20140515
  Serious: Yes (Other)
  Sender: FDA-Public Use
  Company Number: None

PATIENT
  Age: 57 Year
  Sex: Male

DRUGS (1)
  1. FULYZAQ [Suspect]
     Indication: HIV INFECTION
     Route: 048

REACTIONS (2)
  - Diarrhoea [None]
  - Unevaluable event [None]
